FAERS Safety Report 7540292-3 (Version None)
Quarter: 2011Q2

REPORT INFORMATION
  Report Type: 
  Country: None (occurrence: None)
  Receive Date: 20110610
  Receipt Date: 20110601
  Transmission Date: 20111010
  Serious: Yes (Other)
  Sender: FDA-Public Use
  Company Number: PHHY2010US88125

PATIENT
  Sex: Female

DRUGS (11)
  1. VITAMIN D [Concomitant]
     Indication: OSTEOPOROSIS
     Dosage: 1500 IU, QD
     Route: 048
     Dates: start: 20100903
  2. ZANAFLEX [Concomitant]
     Indication: MUSCLE SPASMS
     Dosage: 1 MG IN MORNING, 1 MG IN NOON, 2 MG AT NIGHT
     Route: 048
     Dates: start: 20101004, end: 20110511
  3. VESICARE [Concomitant]
     Indication: HYPERTONIC BLADDER
     Dosage: 10 MG, QD
     Route: 048
     Dates: start: 20100528
  4. LEVOXYL [Concomitant]
     Indication: THYROID DISORDER
     Dosage: 25 UG, DAILY
     Route: 048
     Dates: start: 20060719
  5. BONIVA [Concomitant]
     Indication: OSTEOPOROSIS
     Dosage: 150 MG, QMO
     Route: 048
     Dates: start: 20090724
  6. GILENYA [Suspect]
     Indication: MULTIPLE SCLEROSIS
     Dosage: UNK
  7. PREMARIN [Concomitant]
     Indication: HORMONE REPLACEMENT THERAPY
     Dosage: 0.3 MG, DAILY
     Route: 048
     Dates: start: 20080117
  8. LISINOPRIL [Concomitant]
     Indication: HYPERTENSION
     Dosage: 5 MG, BID
     Route: 048
     Dates: start: 20110213
  9. POTASSIUM CHLORIDE [Concomitant]
     Indication: FLUID RETENTION
     Dosage: 10 UG, TID
     Route: 048
     Dates: start: 20060502
  10. AMITRIPTYLINE HCL [Concomitant]
     Indication: DIVERTICULITIS
     Dosage: 5 MG, QHS
     Route: 048
     Dates: start: 20080117
  11. LYRICA [Concomitant]
     Indication: POST HERPETIC NEURALGIA
     Dosage: 300 MG, BID
     Route: 048
     Dates: start: 20080117

REACTIONS (2)
  - CONJUNCTIVITIS [None]
  - OTITIS MEDIA [None]
